FAERS Safety Report 15458461 (Version 1)
Quarter: 2018Q4

REPORT INFORMATION
  Report Type: Spontaneous
  Country: US (occurrence: US)
  Receive Date: 20181003
  Receipt Date: 20181003
  Transmission Date: 20190204
  Serious: No
  Sender: FDA-Public Use
  Company Number: US-PFIZER INC-2018392635

PATIENT
  Age: 86 Year
  Sex: Female

DRUGS (14)
  1. LANSOPRAZOLE. [Concomitant]
     Active Substance: LANSOPRAZOLE
     Dosage: 30 MG, 1X/DAY (EVERY MORNING 30-60 MINUTES BEFORE BREAKFAST)
     Route: 048
  2. SIMVASTATIN. [Concomitant]
     Active Substance: SIMVASTATIN
     Dosage: 40 MG, 1X/DAY (AT BEDTIME)
     Route: 048
  3. CRANBERRY. [Concomitant]
     Active Substance: CRANBERRY
     Dosage: 400 MG, 3X/DAY (WITH MEALS )
     Route: 048
  4. UBIQUINOL [Concomitant]
     Active Substance: UBIQUINOL
     Dosage: 100 MG, UNK
     Route: 048
  5. PREDNISONE. [Concomitant]
     Active Substance: PREDNISONE
     Dosage: 5 MG, AS NEEDED (WITH BREAKFAST PRN 30 DAY(S), 30 REFILLS 05)
     Route: 048
  6. LEUCOVORIN CALCIUM. [Concomitant]
     Active Substance: LEUCOVORIN CALCIUM
     Dosage: 5 MG, WEEKLY ((12 HOURS AFTER LAST DOSE OF MTX) 90 DAY(S), 12 REFILLS 01)
     Route: 048
  7. METHOTREXATE SODIUM. [Suspect]
     Active Substance: METHOTREXATE SODIUM
     Indication: RHEUMATOID ARTHRITIS
     Dosage: 10 MG, WEEKLY
     Route: 048
  8. CENTRUM SILVER WOMEN 50+ [Concomitant]
     Dosage: UNK
     Route: 048
  9. BENTYL [Concomitant]
     Active Substance: DICYCLOMINE HYDROCHLORIDE
     Dosage: 10 MG, 4X/DAY (30 MINUTES BEFORE MEALS AND AT BEDTIME)
     Route: 048
  10. ALIGN [Concomitant]
     Active Substance: BIFIDOBACTERIUM LONGUM SUBSP. INFANTIS
     Dosage: 4 MG, UNK
     Route: 048
  11. FOLIC ACID. [Concomitant]
     Active Substance: FOLIC ACID
     Dosage: 3 MG, 1X/DAY (1 MG TABLET 3 TABLET ORALLY ONCE A DAY)
     Route: 048
  12. OSTEO BI-FLEX TRIPLE STRENGTH WITH VITAMIN D [Concomitant]
     Dosage: UNK
     Route: 048
  13. METAMUCIL [PSYLLIUM HYDROPHILIC MUCILLOID] [Concomitant]
     Dosage: UNK , AS NEEDED (1 PACKET WITH 8 OUNCES OF LIQUID AS NEEDED ORALLY THREE TIMES A DAY)
     Route: 048
  14. PREDNISONE. [Concomitant]
     Active Substance: PREDNISONE
     Dosage: 10 MG, AS NEEDED (1 TABLET WITH FOOD OR MILK ORALLY WITH BREAKFAST)
     Route: 048
     Dates: end: 20180901

REACTIONS (3)
  - Pain [Unknown]
  - Nausea [Unknown]
  - Musculoskeletal stiffness [Unknown]
